FAERS Safety Report 11012666 (Version 1)
Quarter: 2015Q2

REPORT INFORMATION
  Report Type: Spontaneous
  Country: US (occurrence: None)
  Receive Date: 20150409
  Receipt Date: 20150409
  Transmission Date: 20150821
  Serious: Yes (Other)
  Sender: FDA-Public Use
  Company Number: COR_00276_2015

PATIENT
  Age: 6 Year
  Sex: Female

DRUGS (8)
  1. CARBOPLATIN. [Suspect]
     Active Substance: CARBOPLATIN
     Indication: OVARIAN CANCER STAGE III
     Dosage: HIGH-DOSE
  2. VINBLASTINE [Suspect]
     Active Substance: VINBLASTINE
     Indication: OVARIAN CANCER STAGE III
     Dosage: 6 MG/M2, EVERY THREE TO FOUR WEEKS
  3. CISPLATIN. [Suspect]
     Active Substance: CISPLATIN
     Indication: OVARIAN CANCER STAGE III
     Dosage: 90 MG/M2, EVERY THREE TO FOUR WEEKS
  4. MELPHALAN [Suspect]
     Active Substance: MELPHALAN
     Indication: OVARIAN CANCER STAGE III
     Dosage: HIGH-DOSE
  5. CYCLOPHOSPHAMIDE. [Suspect]
     Active Substance: CYCLOPHOSPHAMIDE
     Indication: OVARIAN CANCER STAGE III
     Dosage: 1000 MG/M2, EVERY THREE TO FOUR WEEKS
  6. ETOPOSIDE. [Suspect]
     Active Substance: ETOPOSIDE
     Indication: OVARIAN CANCER STAGE III
     Dosage: 200 MG/M2, EVERY THREE TO FOUR WEEKS
  7. BLEOMYCIN [Suspect]
     Active Substance: BLEOMYCIN SULFATE
     Indication: OVARIAN CANCER STAGE III
     Dosage: 15 IU/M; EVERY THREE TO FOUR WEEKS
  8. DOXORUBICIN [Suspect]
     Active Substance: DOXORUBICIN
     Indication: OVARIAN CANCER STAGE III
     Dosage: 45 MG/M2, EVERY THREE TO FOUR WEEKS

REACTIONS (8)
  - Abdominal compartment syndrome [None]
  - Venoocclusive liver disease [None]
  - Febrile neutropenia [None]
  - Ascites [None]
  - Renal failure [None]
  - Bone marrow failure [None]
  - Respiratory failure [None]
  - Decreased appetite [None]
